FAERS Safety Report 17540831 (Version 1)
Quarter: 2020Q1

REPORT INFORMATION
  Report Type: Spontaneous
  Country: CN (occurrence: CN)
  Receive Date: 20200313
  Receipt Date: 20200313
  Transmission Date: 20200409
  Serious: Yes (Other)
  Sender: FDA-Public Use
  Company Number: CN-ASTRAZENECA-2020SE33728

PATIENT
  Age: 66 Year
  Sex: Male

DRUGS (2)
  1. LOSEC [Suspect]
     Active Substance: OMEPRAZOLE
     Dosage: 2.0DF UNKNOWN
     Route: 048
  2. LOSEC [Suspect]
     Active Substance: OMEPRAZOLE
     Dosage: 1.0DF UNKNOWN
     Route: 048

REACTIONS (5)
  - Extra dose administered [Unknown]
  - Abdominal discomfort [Unknown]
  - Neoplasm malignant [Unknown]
  - Abdominal pain upper [Unknown]
  - Biliary colic [Unknown]
